FAERS Safety Report 7382987-0 (Version None)
Quarter: 2011Q1

REPORT INFORMATION
  Report Type: 
  Country: None (occurrence: None)
  Receive Date: 20110324
  Receipt Date: 20110324
  Transmission Date: 20110831
  Serious: Yes (Other)
  Sender: FDA-Public Use
  Company Number: None

PATIENT
  Age: 49 Year
  Sex: Female
  Weight: 77.1115 kg

DRUGS (2)
  1. LEXAPRO [Suspect]
     Indication: ANXIETY
     Dosage: 10MG 1X DAILY ORAL
     Route: 048
     Dates: start: 20110111, end: 20110116
  2. LEXAPRO [Suspect]
     Indication: DEPRESSION
     Dosage: 10MG 1X DAILY ORAL
     Route: 048
     Dates: start: 20110111, end: 20110116

REACTIONS (5)
  - NAUSEA [None]
  - ABDOMINAL PAIN [None]
  - DIARRHOEA [None]
  - ABDOMINAL DISTENSION [None]
  - FREQUENT BOWEL MOVEMENTS [None]
